FAERS Safety Report 22371242 (Version 1)
Quarter: 2023Q2

REPORT INFORMATION
  Report Type: Other
  Country: CA (occurrence: None)
  Receive Date: 20230526
  Receipt Date: 20230526
  Transmission Date: 20230722
  Serious: Yes (Other)
  Sender: FDA-Public Use
  Company Number: CA-ROCHE-3354530

PATIENT

DRUGS (2)
  1. RITUXIMAB [Suspect]
     Active Substance: RITUXIMAB
     Indication: Follicular lymphoma
     Route: 042
  2. MELPHALAN [Suspect]
     Active Substance: MELPHALAN
     Indication: Follicular lymphoma
     Route: 042

REACTIONS (9)
  - Acute myeloid leukaemia [Unknown]
  - Lung neoplasm malignant [Unknown]
  - Breast cancer [Unknown]
  - Malignant melanoma [Unknown]
  - Oesophageal carcinoma [Unknown]
  - Renal cell carcinoma [Unknown]
  - Bladder cancer [Unknown]
  - B-cell type acute leukaemia [Unknown]
  - Prostate cancer [Unknown]
